FAERS Safety Report 4776831-5 (Version None)
Quarter: 2005Q3

REPORT INFORMATION
  Report Type: 
  Country: None (occurrence: None)
  Receive Date: 20050914
  Receipt Date: 20040909
  Transmission Date: 20060218
  Serious: Yes (Death)
  Sender: FDA-Public Use
  Company Number: 163-20785-04090215

PATIENT
  Age: 64 Year
  Sex: Male

DRUGS (1)
  1. THALOMID [Suspect]
     Indication: MULTIPLE MYELOMA
     Dosage: 200 MG, QHS, ORAL
     Route: 048
     Dates: start: 20040325, end: 20040329

REACTIONS (6)
  - BACTERIAL INFECTION [None]
  - DEATH [None]
  - INFECTION [None]
  - PSEUDOMONAS INFECTION [None]
  - RASH ERYTHEMATOUS [None]
  - STAPHYLOCOCCAL INFECTION [None]
